FAERS Safety Report 11983158 (Version 1)
Quarter: 2016Q1

REPORT INFORMATION
  Report Type: Spontaneous
  Country: JP (occurrence: JP)
  Receive Date: 20160201
  Receipt Date: 20160201
  Transmission Date: 20160526
  Serious: Yes (Hospitalization, Other)
  Sender: FDA-Public Use
  Company Number: JP-PFIZER INC-2015434313

PATIENT
  Age: 74 Year
  Sex: Female

DRUGS (4)
  1. ROPION [Suspect]
     Active Substance: FLURBIPROFEN AXETIL
     Indication: LUMBAR SPINAL STENOSIS
     Dosage: 10 ML, DAILY
     Route: 042
     Dates: start: 20151128, end: 20151129
  2. VOLTAREN [Suspect]
     Active Substance: DICLOFENAC SODIUM
     Indication: LUMBAR SPINAL STENOSIS
     Dosage: 100 MG, DAILY
     Dates: start: 20151128, end: 20151129
  3. LYRICA [Suspect]
     Active Substance: PREGABALIN
     Indication: NEURALGIA
     Dosage: 75 MG, DAILY
     Route: 048
     Dates: start: 20151022, end: 20151126
  4. LOBU [Suspect]
     Active Substance: LOBUCAVIR
     Indication: LUMBAR SPINAL STENOSIS
     Dosage: 180 MG, DAILY
     Route: 048
     Dates: start: 20151126, end: 20151127

REACTIONS (6)
  - White blood cell count increased [Unknown]
  - Rash papular [Recovered/Resolved]
  - Condition aggravated [Recovered/Resolved]
  - Acute kidney injury [Unknown]
  - Hepatic function abnormal [Recovered/Resolved]
  - Back pain [Recovered/Resolved]

NARRATIVE: CASE EVENT DATE: 201511
